FAERS Safety Report 10181733 (Version 1)
Quarter: 2014Q2

REPORT INFORMATION
  Report Type: Spontaneous
  Country: US (occurrence: US)
  Receive Date: 20140519
  Receipt Date: 20140519
  Transmission Date: 20141212
  Serious: No
  Sender: FDA-Public Use
  Company Number: US-BANPHARM-20131821

PATIENT
  Age: 81 Year
  Sex: Male
  Weight: 74.84 kg

DRUGS (1)
  1. IBUPROFEN CAPSULES 200 MG [Suspect]
     Indication: PAIN
     Dosage: 2 DF, ONCE A DAY,
     Route: 048
     Dates: start: 20131009

REACTIONS (1)
  - Abdominal discomfort [Unknown]
